FAERS Safety Report 9585995 (Version 4)
Quarter: 2014Q1

REPORT INFORMATION
  Report Type: Spontaneous
  Country: US (occurrence: US)
  Receive Date: 20131003
  Receipt Date: 20140131
  Transmission Date: 20141002
  Serious: Yes (Other)
  Sender: FDA-Public Use
  Company Number: US-PFIZER INC-2013281149

PATIENT
  Age: 93 Year
  Sex: Female

DRUGS (1)
  1. FLECTOR [Suspect]
     Indication: NECK PAIN
     Dosage: UNK

REACTIONS (3)
  - Cerebrovascular accident [Recovering/Resolving]
  - Product quality issue [Unknown]
  - Drug ineffective [Unknown]
